FAERS Safety Report 8196722-X (Version None)
Quarter: 2012Q1

REPORT INFORMATION
  Report Type: 
  Country: None (occurrence: None)
  Receive Date: 20120309
  Receipt Date: 20120305
  Transmission Date: 20120608
  Serious: Yes (Death, Other)
  Sender: FDA-Public Use
  Company Number: PHHY2012DE019910

PATIENT
  Sex: Male
  Weight: 118 kg

DRUGS (13)
  1. ALLOPURINOL [Concomitant]
     Indication: HYPERURICAEMIA
     Dosage: 300 MG, PER DAY
     Route: 048
     Dates: start: 20071129
  2. PLATELET AGGREGATION INHIBITORS [Concomitant]
  3. METOPROLOL TARTRATE [Concomitant]
     Indication: HYPERTENSION
     Dosage: 50 MG PER DAY
     Route: 048
     Dates: start: 20080603
  4. HMG COA REDUCTASE INHIBITORS [Concomitant]
  5. OTHER ANTIHYPERTENSIVES [Concomitant]
  6. ORAL ANTIDIABETICS [Concomitant]
     Indication: DIABETES MELLITUS
  7. TORSEMIDE [Concomitant]
     Indication: CARDIAC FAILURE
  8. CHOLESTEROL- AND TRIGLYCERIDE REDUCERS [Concomitant]
  9. TORSEMIDE [Concomitant]
     Indication: OEDEMA PERIPHERAL
     Dosage: 50 MG, PER DAY
     Route: 048
     Dates: start: 20071106
  10. CALCIUM CHANNEL BLOCKERS [Concomitant]
  11. RASILEZ [Suspect]
     Indication: HYPERTENSION
     Dosage: 300 MG/DAY
     Route: 048
  12. DIOVAN [Suspect]
     Indication: HYPERTENSION
     Dosage: 320 MG/DAY
     Route: 048
  13. INSULIN [Concomitant]
     Indication: DIABETES MELLITUS

REACTIONS (3)
  - DEATH [None]
  - BLOOD CREATININE INCREASED [None]
  - CARDIAC FAILURE [None]
